FAERS Safety Report 7151957-X (Version None)
Quarter: 2010Q4

REPORT INFORMATION
  Report Type: 
  Country: None (occurrence: None)
  Receive Date: 20101210
  Receipt Date: 20101206
  Transmission Date: 20110411
  Serious: Yes (Death, Life-Threatening, Hospitalization, Other)
  Sender: FDA-Public Use
  Company Number: US-AMGEN-USASP2010004483

PATIENT

DRUGS (4)
  1. ENBREL [Suspect]
     Indication: RHEUMATOID ARTHRITIS
     Dosage: 25 MG, 2 TIMES/WK
     Dates: start: 20060101
  2. ENBREL [Suspect]
     Dosage: 50 MG, QWK
     Dates: start: 20090101
  3. PREDNISONE [Concomitant]
     Dosage: 10 MG, QD
     Route: 048
     Dates: start: 20030101
  4. PREDNISONE [Concomitant]
     Dosage: 20 MG, QD
     Route: 048
     Dates: start: 20030101

REACTIONS (3)
  - CEREBELLAR ARTERY THROMBOSIS [None]
  - DEEP VEIN THROMBOSIS [None]
  - PROGRESSIVE MULTIFOCAL LEUKOENCEPHALOPATHY [None]
